FAERS Safety Report 6936244-4 (Version None)
Quarter: 2010Q3

REPORT INFORMATION
  Report Type: 
  Country: None (occurrence: None)
  Receive Date: 20100823
  Receipt Date: 20100811
  Transmission Date: 20110219
  Serious: Yes (Death)
  Sender: FDA-Public Use
  Company Number: SE-PFIZER INC-2005081910

PATIENT
  Age: 60 Year
  Sex: Female

DRUGS (8)
  1. XANOR [Suspect]
     Dosage: 1 MG, UNK
     Route: 048
  2. NOZINAN [Suspect]
     Indication: ILL-DEFINED DISORDER
     Dosage: 25 MG, UNK
     Route: 048
  3. ZOPICLONE [Suspect]
     Dosage: 5 MG, UNK
     Route: 048
  4. KLIOGEST [Suspect]
     Indication: MENOPAUSAL SYMPTOMS
     Dosage: UNK
     Route: 048
     Dates: start: 19990914, end: 20050125
  5. HERMOLEPSIN [Suspect]
     Indication: ILL-DEFINED DISORDER
     Dosage: 200 MG, UNK
     Route: 048
     Dates: start: 20010226, end: 20050125
  6. REMERON [Suspect]
     Indication: ILL-DEFINED DISORDER
     Dosage: UNK
     Route: 065
  7. SPIRIVA [Concomitant]
     Dosage: UNK
     Route: 065
  8. BUVENTOL [Concomitant]
     Dosage: UNK
     Route: 065

REACTIONS (3)
  - ARTERIOSCLEROSIS [None]
  - MALIGNANT URINARY TRACT NEOPLASM [None]
  - VENOUS THROMBOSIS [None]
